FAERS Safety Report 20748617 (Version 1)
Quarter: 2022Q2

REPORT INFORMATION
  Report Type: Spontaneous
  Country: US (occurrence: US)
  Receive Date: 20220426
  Receipt Date: 20220426
  Transmission Date: 20220721
  Serious: Yes (Disabling, Other)
  Sender: FDA-Public Use
  Company Number: US-BTG INTERNATIONAL LTD-2017BTG01377

PATIENT
  Age: 40 Year
  Sex: Female

DRUGS (3)
  1. CROFAB [Suspect]
     Active Substance: CROTALIDAE POLYVALENT IMMUNE FAB (OVINE)
     Indication: Snake bite
     Dosage: UNK
     Route: 042
     Dates: start: 20170915
  2. MORPHINE [Concomitant]
     Active Substance: MORPHINE
     Indication: Pain
     Dosage: UNK
     Route: 065
     Dates: start: 20170915
  3. BENADRYL                           /00000402/ [Concomitant]
     Indication: Pruritus
     Dosage: UNK
     Route: 065
     Dates: start: 20170915

REACTIONS (3)
  - Complex regional pain syndrome [Not Recovered/Not Resolved]
  - Drug ineffective [Unknown]
  - Contusion [Unknown]

NARRATIVE: CASE EVENT DATE: 20170915
